FAERS Safety Report 8070468-0 (Version None)
Quarter: 2012Q1

REPORT INFORMATION
  Report Type: 
  Country: None (occurrence: None)
  Receive Date: 20120125
  Receipt Date: 20120113
  Transmission Date: 20120608
  Serious: Yes (Hospitalization, Other)
  Sender: FDA-Public Use
  Company Number: US-ELI_LILLY_AND_COMPANY-US201201004624

PATIENT
  Age: 70 Year
  Sex: Male

DRUGS (2)
  1. CARBOPLATIN [Concomitant]
  2. ALIMTA [Suspect]
     Indication: NON-SMALL CELL LUNG CANCER STAGE IV
     Dosage: 500 MG/M2, UNK

REACTIONS (1)
  - PANCREATITIS ACUTE [None]
